FAERS Safety Report 9223399 (Version 2)
Quarter: 2013Q2

REPORT INFORMATION
  Report Type: Report from Study
  Country: US (occurrence: US)
  Receive Date: 20130410
  Receipt Date: 20130516
  Transmission Date: 20140414
  Serious: Yes (Death, Life-Threatening, Other)
  Sender: FDA-Public Use
  Company Number: US-ROCHE-1211105

PATIENT
  Sex: 0

DRUGS (1)
  1. ALTEPLASE [Suspect]
     Indication: PULMONARY EMBOLISM
     Route: 042

REACTIONS (12)
  - Death [Fatal]
  - Haemorrhage [Unknown]
  - Haemorrhage [Unknown]
  - Hypotension [Unknown]
  - Haematuria [Unknown]
  - Anaemia [Unknown]
  - Subcutaneous haematoma [Unknown]
  - Muscle haemorrhage [Unknown]
  - Vessel puncture site haemorrhage [Unknown]
  - Gastrointestinal haemorrhage [Unknown]
  - Epistaxis [Unknown]
  - Haemoptysis [Unknown]
